FAERS Safety Report 6061651-4 (Version None)
Quarter: 2009Q1

REPORT INFORMATION
  Report Type: 
  Country: None (occurrence: None)
  Receive Date: 20090202
  Receipt Date: 20090128
  Transmission Date: 20090719
  Serious: Yes (Other)
  Sender: FDA-Public Use
  Company Number: B0529114A

PATIENT
  Age: 55 Year
  Sex: Female

DRUGS (11)
  1. SERETIDE [Suspect]
     Indication: ASTHMA
     Dosage: 2PUFF TWICE PER DAY
     Route: 055
     Dates: start: 20070201
  2. FYBOGEL [Suspect]
     Indication: DRUG USE FOR UNKNOWN INDICATION
     Dosage: 3.5G TWICE PER DAY
     Route: 065
  3. GAVISCON [Suspect]
     Indication: DRUG USE FOR UNKNOWN INDICATION
     Dosage: 10ML AS REQUIRED
     Route: 065
  4. SALBUTAMOL [Suspect]
     Indication: DRUG USE FOR UNKNOWN INDICATION
     Route: 055
  5. MONTELUKAST SODIUM [Suspect]
     Indication: DRUG USE FOR UNKNOWN INDICATION
     Dosage: 10MG AT NIGHT
     Route: 065
  6. LACTULOSE [Suspect]
     Indication: DRUG USE FOR UNKNOWN INDICATION
     Dosage: 10ML AT NIGHT
     Route: 065
  7. ACETAMINOPHEN W/ CODEINE [Suspect]
     Indication: DRUG USE FOR UNKNOWN INDICATION
     Dosage: 500MG AS REQUIRED
     Route: 065
  8. TRIMETHOPRIM [Suspect]
     Indication: DRUG USE FOR UNKNOWN INDICATION
     Dosage: 100MG AT NIGHT
     Route: 065
  9. LOSARTAN [Suspect]
     Indication: DRUG USE FOR UNKNOWN INDICATION
     Dosage: 100MG PER DAY
     Route: 065
  10. OMEPRAZOLE [Suspect]
     Indication: DRUG USE FOR UNKNOWN INDICATION
     Dosage: 20MG TWICE PER DAY
     Route: 065
  11. UNKNOWN [Suspect]
     Indication: DRUG USE FOR UNKNOWN INDICATION
     Dosage: 3.9MG TWO TIMES PER WEEK
     Route: 062

REACTIONS (3)
  - ASTHMA [None]
  - MYALGIA [None]
  - SPUTUM RETENTION [None]
